FAERS Safety Report 18681385 (Version 2)
Quarter: 2021Q1

REPORT INFORMATION
  Report Type: Spontaneous
  Country: US (occurrence: US)
  Receive Date: 20201229
  Receipt Date: 20210101
  Transmission Date: 20210419
  Serious: No
  Sender: FDA-Public Use
  Company Number: US-TEVA-2020-US-1862710

PATIENT
  Sex: Female

DRUGS (1)
  1. BUPROPION HYDROCHLORIDE EXTENDED RELEASE ACTAVIS [Suspect]
     Active Substance: BUPROPION HYDROCHLORIDE
     Route: 065

REACTIONS (6)
  - Drug intolerance [Unknown]
  - Bruxism [Unknown]
  - Product substitution issue [Unknown]
  - Eye swelling [Unknown]
  - Urticaria [Unknown]
  - Tinnitus [Unknown]

NARRATIVE: CASE EVENT DATE: 20201221
